FAERS Safety Report 20567810 (Version 1)
Quarter: 2022Q1

REPORT INFORMATION
  Report Type: Report from Study
  Country: SE (occurrence: SE)
  Receive Date: 20220308
  Receipt Date: 20220308
  Transmission Date: 20220423
  Serious: Yes (Other)
  Sender: FDA-Public Use
  Company Number: SE-PFIZER INC-202200342457

PATIENT
  Age: 58 Year
  Sex: Male
  Weight: 49 kg

DRUGS (15)
  1. METHOTREXATE SODIUM [Suspect]
     Active Substance: METHOTREXATE SODIUM
  2. TOCILIZUMAB [Suspect]
     Active Substance: TOCILIZUMAB
     Indication: Rheumatoid arthritis
     Dosage: 400 MG/4 W
  3. PREDNISOLONE [Suspect]
     Active Substance: PREDNISOLONE
  4. ALFACALCIDOL [Concomitant]
     Active Substance: ALFACALCIDOL
  5. ALLOPURINOL [Concomitant]
     Active Substance: ALLOPURINOL
  6. CALCIUM ASPARTATE [Concomitant]
     Active Substance: CALCIUM ASPARTATE
  7. DICLOFENAC [Concomitant]
     Active Substance: DICLOFENAC
  8. DIMETHICONE [Concomitant]
     Active Substance: DIMETHICONE
  9. ETIZOLAM [Concomitant]
     Active Substance: ETIZOLAM
  10. IRON [Concomitant]
     Active Substance: IRON
  11. LANSOPRAZOLE [Concomitant]
     Active Substance: LANSOPRAZOLE
  12. MIZORIBINE [Concomitant]
     Active Substance: MIZORIBINE
  13. RISEDRONIC ACID [Concomitant]
     Active Substance: RISEDRONIC ACID
  14. TACROLIMUS [Concomitant]
     Active Substance: TACROLIMUS
  15. ZOPICLONE [Concomitant]
     Active Substance: ZOPICLONE

REACTIONS (1)
  - Gastric perforation [Recovered/Resolved]
